FAERS Safety Report 15413854 (Version 2)
Quarter: 2018Q4

REPORT INFORMATION
  Report Type: Report from Study
  Country: US (occurrence: US)
  Receive Date: 20180921
  Receipt Date: 20181217
  Transmission Date: 20190204
  Serious: Yes (Hospitalization, Other)
  Sender: FDA-Public Use
  Company Number: PHEH2018US039563

PATIENT
  Age: 63 Year
  Sex: Female
  Weight: 83 kg

DRUGS (1)
  1. COSENTYX [Suspect]
     Active Substance: SECUKINUMAB
     Indication: PSORIASIS
     Dosage: 300 MG, QMO
     Route: 058
     Dates: start: 20180614, end: 20180812

REACTIONS (6)
  - Inflammatory bowel disease [Unknown]
  - Colitis ulcerative [Recovering/Resolving]
  - Diarrhoea [Unknown]
  - Haematochezia [Unknown]
  - Abdominal pain [Unknown]
  - Lower gastrointestinal haemorrhage [Unknown]

NARRATIVE: CASE EVENT DATE: 20180820
